FAERS Safety Report 18213525 (Version 7)
Quarter: 2023Q4

REPORT INFORMATION
  Report Type: Spontaneous
  Country: US (occurrence: US)
  Receive Date: 20200831
  Receipt Date: 20231120
  Transmission Date: 20240109
  Serious: Yes (Other)
  Sender: FDA-Public Use
  Company Number: US-PFIZER INC-2020313117

PATIENT
  Age: 64 Year
  Sex: Male
  Weight: 112 kg

DRUGS (6)
  1. XELJANZ [Suspect]
     Active Substance: TOFACITINIB CITRATE
     Indication: Crohn^s disease
     Dosage: 10 MG, 2X/DAY
     Dates: start: 2019
  2. XELJANZ [Suspect]
     Active Substance: TOFACITINIB CITRATE
     Indication: Large intestine polyp
  3. METOPROLOL TARTRATE [Concomitant]
     Active Substance: METOPROLOL TARTRATE
     Indication: Blood pressure abnormal
     Dosage: 25 MG, 2X/DAY
  4. ATORVASTATIN [Concomitant]
     Active Substance: ATORVASTATIN
     Indication: Blood cholesterol abnormal
     Dosage: 10 MG, DAILY
  5. BALSALAZIDE [Concomitant]
     Active Substance: BALSALAZIDE
     Indication: Crohn^s disease
     Dosage: 1500 MG, 2X/DAY (750 MG TWO CAPSULES TWO TIMES A DAY)
  6. DICYCLOMINE [Concomitant]
     Active Substance: DICYCLOMINE HYDROCHLORIDE
     Indication: Muscle spasms
     Dosage: 10 MG, 3X/DAY

REACTIONS (7)
  - Colon injury [Unknown]
  - Weight decreased [Unknown]
  - Off label use [Unknown]
  - Drug effective for unapproved indication [Unknown]
  - Arthritis [Unknown]
  - Arthralgia [Unknown]
  - Nasal congestion [Unknown]
